FAERS Safety Report 16925504 (Version 1)
Quarter: 2019Q4

REPORT INFORMATION
  Report Type: Spontaneous
  Country: US (occurrence: US)
  Receive Date: 20191016
  Receipt Date: 20191016
  Transmission Date: 20200122
  Serious: Yes (Death)
  Sender: FDA-Public Use
  Company Number: None

PATIENT
  Age: 72 Year
  Sex: Female

DRUGS (17)
  1. ASPIRIN. [Concomitant]
     Active Substance: ASPIRIN
  2. AMLODIPINE [Concomitant]
     Active Substance: AMLODIPINE BESYLATE
  3. CARVEDILOL. [Concomitant]
     Active Substance: CARVEDILOL
  4. SPIRONOLACTONE. [Concomitant]
     Active Substance: SPIRONOLACTONE
  5. TOUJEO [Concomitant]
     Active Substance: INSULIN GLARGINE
  6. WARFARIN [Concomitant]
     Active Substance: WARFARIN
  7. TERAZOSIN [Concomitant]
     Active Substance: TERAZOSIN HYDROCHLORIDE
  8. METHOCARBAMOL. [Concomitant]
     Active Substance: METHOCARBAMOL
  9. TYLENOL [Concomitant]
     Active Substance: ACETAMINOPHEN
  10. LEVOTHYROXINE. [Concomitant]
     Active Substance: LEVOTHYROXINE
  11. POLY-IRON [Concomitant]
     Active Substance: IRON
  12. ULORIC [Concomitant]
     Active Substance: FEBUXOSTAT
  13. ATORVASTATIN [Concomitant]
     Active Substance: ATORVASTATIN
  14. HUMALOG [Concomitant]
     Active Substance: INSULIN LISPRO
  15. LATANOPROST. [Concomitant]
     Active Substance: LATANOPROST
  16. PROCRIT [Suspect]
     Active Substance: ERYTHROPOIETIN
     Indication: OSTEOARTHRITIS
     Dosage: ?          OTHER FREQUENCY:EVERY TWO WEEKS;?
     Route: 058
     Dates: start: 20161013, end: 20190903
  17. TORSEMIDE. [Concomitant]
     Active Substance: TORSEMIDE

REACTIONS (1)
  - Death [None]

NARRATIVE: CASE EVENT DATE: 20190903
